FAERS Safety Report 7064285-8 (Version None)
Quarter: 2010Q4

REPORT INFORMATION
  Report Type: 
  Country: None (occurrence: None)
  Receive Date: 20101027
  Receipt Date: 20101020
  Transmission Date: 20110411
  Serious: Yes (Life-Threatening, Hospitalization)
  Sender: FDA-Public Use
  Company Number: JP-ASTRAZENECA-2010SE49667

PATIENT
  Age: 90 Year
  Sex: Female

DRUGS (2)
  1. TENORMIN [Suspect]
     Route: 048
  2. PILSICAINIDE HYDROCHLORIDE [Suspect]
     Route: 048

REACTIONS (3)
  - ACIDOSIS [None]
  - SINUS BRADYCARDIA [None]
  - TACHYCARDIA [None]
